FAERS Safety Report 8917596 (Version 5)
Quarter: 2013Q1

REPORT INFORMATION
  Report Type: Spontaneous
  Country: US (occurrence: US)
  Receive Date: 20121120
  Receipt Date: 20130103
  Transmission Date: 20140127
  Serious: Yes (Hospitalization, Other)
  Sender: FDA-Public Use
  Company Number: US-009507513-1111USA00072

PATIENT
  Sex: 0

DRUGS (8)
  1. FOSAMAX [Suspect]
     Indication: OSTEOPOROSIS PROPHYLAXIS
     Dosage: 70 MG, QW
     Route: 048
     Dates: start: 2000, end: 200808
  2. ALENDRONATE SODIUM [Suspect]
     Indication: OSTEOPOROSIS PROPHYLAXIS
     Dosage: 70 MG, QW
     Route: 048
     Dates: start: 200808, end: 200912
  3. CALCIUM (UNSPECIFIED) (+) VITAMIN D (UNSPECIFIED) [Concomitant]
     Dosage: 600/1000
     Route: 048
     Dates: start: 1960
  4. CENTRUM (MINERALS (UNSPECIFIED) (+) VITAMINS (UNSPECIFIED)) [Concomitant]
     Dosage: 1 DF, QD
     Route: 048
     Dates: start: 1960, end: 2005
  5. OCUVITE [Concomitant]
  6. INSULIN, ISOPHANE [Concomitant]
     Indication: DIABETES MELLITUS
     Dosage: 10 IU, QAM
  7. INSULIN, ISOPHANE [Concomitant]
     Dosage: 6 IU, QPM
  8. INSULIN HUMAN [Concomitant]
     Indication: DIABETES MELLITUS
     Dosage: 5 IU, QAM

REACTIONS (91)
  - Upper limb fracture [Unknown]
  - Fall [Unknown]
  - Compression fracture [Unknown]
  - Essential hypertension [Unknown]
  - Hysterectomy [Unknown]
  - Radius fracture [Recovering/Resolving]
  - Fall [Unknown]
  - Fall [Unknown]
  - Joint injury [Unknown]
  - Insomnia [Unknown]
  - Osteoarthritis [Unknown]
  - Bone erosion [Unknown]
  - Bone disorder [Unknown]
  - Fall [Unknown]
  - Hypoaesthesia [Recovering/Resolving]
  - Radius fracture [Unknown]
  - Ulna fracture [Unknown]
  - Radius fracture [Unknown]
  - Radius fracture [Unknown]
  - Bone disorder [Unknown]
  - Fracture [Unknown]
  - Device intolerance [Unknown]
  - Iliotibial band syndrome [Unknown]
  - Excoriation [Unknown]
  - Bronchitis [Unknown]
  - Pain [Unknown]
  - Groin pain [Unknown]
  - Gastric disorder [Unknown]
  - Anaemia postoperative [Unknown]
  - Fibula fracture [Unknown]
  - Spinal compression fracture [Unknown]
  - Osteoarthritis [Unknown]
  - Drug intolerance [Unknown]
  - Dyspnoea exertional [Unknown]
  - Trigger finger [Unknown]
  - Transient ischaemic attack [Unknown]
  - Anaemia [Unknown]
  - Epistaxis [Unknown]
  - Coronary artery disease [Unknown]
  - Asthma [Unknown]
  - Otitis media [Unknown]
  - Hypoglycaemia [Unknown]
  - Hypertonic bladder [Unknown]
  - Chest pain [Unknown]
  - Hypoglycaemia [Unknown]
  - Fatigue [Unknown]
  - Pyrexia [Unknown]
  - Cough [Unknown]
  - Pneumonitis [Unknown]
  - Anaemia [Unknown]
  - Aortic valve incompetence [Unknown]
  - Abdominal distension [Unknown]
  - Oedema peripheral [Unknown]
  - Oedema peripheral [Unknown]
  - Gastrooesophageal reflux disease [Unknown]
  - Femur fracture [Unknown]
  - Intramedullary rod insertion [Unknown]
  - Humerus fracture [Unknown]
  - Hip arthroplasty [Unknown]
  - Medical device removal [Unknown]
  - Hip fracture [Unknown]
  - Hip fracture [Unknown]
  - Open reduction of fracture [Unknown]
  - Open reduction of fracture [Unknown]
  - Stent placement [Unknown]
  - Catheterisation cardiac [Unknown]
  - Renal failure [Unknown]
  - Elbow operation [Unknown]
  - Intervertebral disc protrusion [Unknown]
  - Clostridium difficile colitis [Unknown]
  - Impacted fracture [Unknown]
  - Fracture nonunion [Unknown]
  - Anaemia postoperative [Recovering/Resolving]
  - Spinal laminectomy [Unknown]
  - Bladder repair [Unknown]
  - Hypoglycaemia [Recovered/Resolved]
  - Surgery [Unknown]
  - Limb operation [Unknown]
  - Cholecystectomy [Unknown]
  - Osteonecrosis [Unknown]
  - Osteonecrosis [Unknown]
  - Limb discomfort [Recovering/Resolving]
  - Anaemia [Unknown]
  - Vertebroplasty [Unknown]
  - Ankle fracture [Unknown]
  - Head injury [Unknown]
  - Hyperlipidaemia [Unknown]
  - Gastrointestinal disorder [Unknown]
  - Radius fracture [Unknown]
  - Fall [Unknown]
  - Ulcer [Unknown]
